FAERS Safety Report 11833750 (Version 1)
Quarter: 2015Q4

REPORT INFORMATION
  Report Type: Spontaneous
  Country: US (occurrence: US)
  Receive Date: 20151214
  Receipt Date: 20151214
  Transmission Date: 20160305
  Serious: Yes (Other)
  Sender: FDA-Public Use
  Company Number: US-GILEAD-2015-0185628

PATIENT
  Age: 44 Year
  Sex: Female

DRUGS (1)
  1. HARVONI [Suspect]
     Active Substance: LEDIPASVIR\SOFOSBUVIR
     Indication: PRODUCT USED FOR UNKNOWN INDICATION
     Dosage: UNK
     Route: 065
     Dates: start: 201508, end: 20151130

REACTIONS (9)
  - Confusional state [Unknown]
  - Headache [Unknown]
  - Amnesia [Unknown]
  - Anxiety [Unknown]
  - Crying [Unknown]
  - Visual impairment [Unknown]
  - Mental status changes [Unknown]
  - Aphasia [Unknown]
  - Disorientation [Unknown]

NARRATIVE: CASE EVENT DATE: 2015
